FAERS Safety Report 7761801-5 (Version None)
Quarter: 2011Q3

REPORT INFORMATION
  Report Type: 
  Country: None (occurrence: None)
  Receive Date: 20110920
  Receipt Date: 20110915
  Transmission Date: 20111222
  Serious: Yes (Other)
  Sender: FDA-Public Use
  Company Number: PHHY2011JP82225

PATIENT
  Age: 31 Year
  Sex: Female

DRUGS (2)
  1. VOLTAREN [Suspect]
     Dosage: UNK UKN, UNK
     Route: 048
  2. PSYCHIATRIC THERAPY [Concomitant]
     Dosage: UNK UKN, UNK
     Route: 048

REACTIONS (1)
  - CATARACT [None]
